FAERS Safety Report 6523901-7 (Version None)
Quarter: 2009Q4

REPORT INFORMATION
  Report Type: 
  Country: None (occurrence: None)
  Receive Date: 20091230
  Receipt Date: 20091230
  Transmission Date: 20100525
  Serious: No
  Sender: FDA-Public Use
  Company Number: None

PATIENT
  Age: 77 Year
  Sex: Male
  Weight: 95.2554 kg

DRUGS (7)
  1. COLD REMEDY ORAL MIST [Suspect]
     Dosage: SPORADIC FOR 2 YEARS ABOUT 2 YRS AGO-RECENT
  2. LIPITOR [Concomitant]
  3. WARFARIN [Concomitant]
  4. COZAAR [Concomitant]
  5. ZEGRID [Concomitant]
  6. DIGOXIN [Concomitant]
  7. FISH OIL [Concomitant]

REACTIONS (2)
  - AGEUSIA [None]
  - DYSGEUSIA [None]
